FAERS Safety Report 6934574-3 (Version None)
Quarter: 2010Q3

REPORT INFORMATION
  Report Type: 
  Country: None (occurrence: None)
  Receive Date: 20100820
  Receipt Date: 20100806
  Transmission Date: 20110219
  Serious: Yes (Hospitalization)
  Sender: FDA-Public Use
  Company Number: SK-GENENTECH-305212

PATIENT
  Age: 14 Year
  Sex: Female

DRUGS (1)
  1. XOLAIR [Suspect]
     Indication: ASTHMA
     Dosage: 450 MG, UNK
     Route: 058
     Dates: start: 20100715

REACTIONS (1)
  - AUTOIMMUNE THROMBOCYTOPENIA [None]
